FAERS Safety Report 10264425 (Version 1)
Quarter: 2014Q2

REPORT INFORMATION
  Report Type: Spontaneous
  Country: NL (occurrence: NL)
  Receive Date: 20140627
  Receipt Date: 20140627
  Transmission Date: 20141212
  Serious: Yes (Life-Threatening)
  Sender: FDA-Public Use
  Company Number: NL-ELI_LILLY_AND_COMPANY-NL201406006038

PATIENT
  Age: 17 Year
  Sex: Male
  Weight: 55 kg

DRUGS (3)
  1. STRATTERA [Suspect]
     Indication: ATTENTION DEFICIT/HYPERACTIVITY DISORDER
     Dosage: 40 MG, QD
     Route: 065
     Dates: start: 200901
  2. STRATTERA [Suspect]
     Indication: AUTISM
     Dosage: 1 DF, UNKNOWN
     Route: 065
  3. MELATONIN [Concomitant]
     Indication: PRODUCT USED FOR UNKNOWN INDICATION
     Dosage: 1 MG, QD
     Route: 065
     Dates: start: 200001

REACTIONS (3)
  - Suicidal behaviour [Unknown]
  - Raynaud^s phenomenon [Recovering/Resolving]
  - Urinary retention [Recovering/Resolving]
